FAERS Safety Report 4741501-6 (Version None)
Quarter: 2005Q3

REPORT INFORMATION
  Report Type: 
  Country: None (occurrence: None)
  Receive Date: 20050808
  Receipt Date: 20050708
  Transmission Date: 20060218
  Serious: Yes (Other)
  Sender: FDA-Public Use
  Company Number: WAES 0311USA00136

PATIENT
  Age: 27 Day
  Sex: Female

DRUGS (2)
  1. INDOCIN I.V. [Suspect]
     Indication: PATENT DUCTUS ARTERIOSUS
     Dosage: 0.2 MG/KG/1X; IV
     Route: 042
  2. DOPAMINE HCL [Concomitant]

REACTIONS (7)
  - DRUG INEFFECTIVE [None]
  - HAEMORRHAGIC DIATHESIS [None]
  - NEONATAL DISORDER [None]
  - POST PROCEDURAL COMPLICATION [None]
  - SHOCK [None]
  - SUBDURAL HAEMATOMA [None]
  - SURGICAL PROCEDURE REPEATED [None]
